FAERS Safety Report 15629035 (Version 2)
Quarter: 2019Q3

REPORT INFORMATION
  Report Type: Report from Study
  Country: JP (occurrence: JP)
  Receive Date: 20181116
  Receipt Date: 20190922
  Transmission Date: 20191004
  Serious: Yes (Hospitalization, Other)
  Sender: FDA-Public Use
  Company Number: JP-ELI_LILLY_AND_COMPANY-JP201811006196

PATIENT
  Age: 47 Year
  Sex: Female
  Weight: 62 kg

DRUGS (8)
  1. LEVOFOLINATE [CALCIUM LEVOFOLINATE] [Concomitant]
     Active Substance: LEVOLEUCOVORIN CALCIUM
     Indication: RECTAL CANCER STAGE IV
     Dosage: 330 MG/M2, OTHER
     Route: 041
     Dates: start: 20180507, end: 20181112
  2. 5 FU [Suspect]
     Active Substance: FLUOROURACIL
     Dosage: 2600 MG/M2, OTHER
     Route: 041
     Dates: start: 20180604, end: 20181112
  3. RAMUCIRUMAB [Suspect]
     Active Substance: RAMUCIRUMAB
     Dosage: 340 MG, OTHER
     Route: 041
     Dates: start: 20180604, end: 20181112
  4. 5 FU [Suspect]
     Active Substance: FLUOROURACIL
     Indication: RECTAL CANCER STAGE IV
     Dosage: 4000 MG/M2, OTHER
     Route: 041
     Dates: start: 20180507, end: 20180507
  5. RAMUCIRUMAB [Suspect]
     Active Substance: RAMUCIRUMAB
     Indication: RECTAL CANCER STAGE IV
     Dosage: 500 MG, OTHER
     Route: 041
     Dates: start: 20180507, end: 20180507
  6. IRINOTECAN HYDROCHLORIDE. [Suspect]
     Active Substance: IRINOTECAN HYDROCHLORIDE
     Indication: RECTAL CANCER STAGE IV
     Dosage: 250 MG/M2, OTHER
     Route: 041
     Dates: start: 20180507, end: 20180507
  7. 5 FU [Suspect]
     Active Substance: FLUOROURACIL
     Indication: RECTAL CANCER STAGE IV
     Dosage: 650 MG/M2, OTHER
     Route: 040
     Dates: start: 20180507, end: 20180507
  8. IRINOTECAN HYDROCHLORIDE. [Suspect]
     Active Substance: IRINOTECAN HYDROCHLORIDE
     Dosage: 170 MG/M2, OTHER
     Route: 041
     Dates: start: 20180604, end: 20181112

REACTIONS (3)
  - Abdominal pain [Recovering/Resolving]
  - Neutrophil count decreased [Recovered/Resolved]
  - Abdominal pain [Recovered/Resolved]

NARRATIVE: CASE EVENT DATE: 20180512
